FAERS Safety Report 12294743 (Version 1)
Quarter: 2016Q2

REPORT INFORMATION
  Report Type: Spontaneous
  Country: GR (occurrence: GR)
  Receive Date: 20160422
  Receipt Date: 20160422
  Transmission Date: 20160815
  Serious: Yes (Hospitalization, Other)
  Sender: FDA-Public Use
  Company Number: PHHY2016GR047603

PATIENT
  Sex: Female

DRUGS (2)
  1. GILENYA [Suspect]
     Active Substance: FINGOLIMOD HYDROCHLORIDE
     Dosage: UNK, QOD
     Route: 065
  2. GILENYA [Suspect]
     Active Substance: FINGOLIMOD HYDROCHLORIDE
     Indication: MULTIPLE SCLEROSIS
     Dosage: UNK
     Route: 065

REACTIONS (8)
  - Impulsive behaviour [Unknown]
  - Oral fungal infection [Recovering/Resolving]
  - Weight decreased [Unknown]
  - Immunosuppression [Unknown]
  - Prescribed underdose [Unknown]
  - Dysphagia [Unknown]
  - Fungal oesophagitis [Recovered/Resolved]
  - Stomatitis [Recovered/Resolved]
